FAERS Safety Report 7982475-4 (Version None)
Quarter: 2011Q4

REPORT INFORMATION
  Report Type: 
  Country: None (occurrence: None)
  Receive Date: 20111215
  Receipt Date: 20111212
  Transmission Date: 20120403
  Serious: Yes (Hospitalization)
  Sender: FDA-Public Use
  Company Number: PHEH2011US011634

PATIENT
  Age: 64 Year
  Sex: Female
  Weight: 77.098 kg

DRUGS (1)
  1. TOBI [Suspect]
     Dosage: 300 MG, TWICE A DAY EVERY OTHER MONTH
     Dates: start: 20080604

REACTIONS (1)
  - PSEUDOMONAS INFECTION [None]
